FAERS Safety Report 7062057-1 (Version None)
Quarter: 2010Q4

REPORT INFORMATION
  Report Type: 
  Country: None (occurrence: None)
  Receive Date: 20101026
  Receipt Date: 20101019
  Transmission Date: 20110411
  Serious: Yes (Other)
  Sender: FDA-Public Use
  Company Number: A0888687A

PATIENT
  Age: 46 Year
  Sex: Female
  Weight: 52.5 kg

DRUGS (15)
  1. ADVAIR DISKUS 100/50 [Suspect]
     Indication: ASTHMA
     Dosage: 2PUFF TWICE PER DAY
     Route: 055
  2. SAVELLA [Suspect]
     Indication: FIBROMYALGIA
     Route: 048
     Dates: start: 20100601, end: 20100914
  3. MAXAIR [Suspect]
     Indication: ASTHMA
     Dosage: 2PUFF PER DAY
     Route: 055
  4. PULMICORT [Suspect]
     Indication: ASTHMA
     Dosage: 360MCG PER DAY
     Route: 055
  5. ZYFLO [Suspect]
     Indication: ASTHMA
     Dosage: 2400MGD PER DAY
     Route: 048
  6. THEOPHYLLINE [Suspect]
     Indication: ASTHMA
     Dosage: 200MG PER DAY
     Route: 048
  7. XYZAL [Concomitant]
     Indication: SEASONAL ALLERGY
     Dosage: 5MG PER DAY
     Route: 048
  8. RELPAX [Concomitant]
     Indication: MIGRAINE
     Dosage: 40MG AS REQUIRED
     Route: 048
  9. RHINOCORT [Concomitant]
     Indication: SEASONAL ALLERGY
     Dosage: 2PUFF PER DAY
     Route: 045
  10. NEXIUM [Concomitant]
     Dosage: 80MGD PER DAY
     Route: 048
  11. TOPAMAX [Concomitant]
     Indication: MIGRAINE
     Dosage: 100MG VARIABLE DOSE
  12. VITAMIN B-12 [Concomitant]
     Dosage: 1INJ MONTHLY
     Route: 030
  13. PERCOCET [Concomitant]
     Indication: FIBROMYALGIA
     Route: 048
  14. MULTI-VITAMIN [Concomitant]
  15. CALCIUM + D [Concomitant]
     Route: 048

REACTIONS (4)
  - BLOOD PRESSURE INCREASED [None]
  - CATARACT [None]
  - OVERDOSE [None]
  - SINUSITIS [None]
